FAERS Safety Report 6879379-7 (Version None)
Quarter: 2010Q3

REPORT INFORMATION
  Report Type: 
  Country: None (occurrence: None)
  Receive Date: 20100728
  Receipt Date: 20100720
  Transmission Date: 20110219
  Serious: Yes (Life-Threatening, Hospitalization)
  Sender: FDA-Public Use
  Company Number: HU-ELI_LILLY_AND_COMPANY-HU201006007344

PATIENT
  Sex: Male
  Weight: 99.3 kg

DRUGS (10)
  1. GEMCITABINE HCL [Suspect]
     Indication: NON-SMALL CELL LUNG CANCER
     Dosage: 2625 MG, TWICE IN 3 WEEKS
     Route: 042
     Dates: start: 20100330, end: 20100623
  2. OTHER PHARMA COMPANY INV DRUG [Suspect]
     Indication: NON-SMALL CELL LUNG CANCER
     Dosage: 800 MG, TWICE IN 3 WEEKS
     Route: 042
     Dates: start: 20100330, end: 20100623
  3. CISPLATIN [Suspect]
     Indication: NON-SMALL CELL LUNG CANCER
     Dosage: 157 MG, ONCE IN 3 WEEKS
     Route: 042
     Dates: start: 20100330, end: 20100623
  4. DOXILEK [Concomitant]
     Dosage: 1 D/F, 2/D
     Dates: start: 19900101
  5. TRENTAL [Concomitant]
     Dosage: 1 D/F, 2/D
     Dates: start: 19900101
  6. RANITIDINE [Concomitant]
     Dosage: 300 MG, 2/D
  7. AMILOZID [Concomitant]
     Dosage: 1 D/F, EACH MORNING
     Dates: start: 19900101
  8. BETALOC ZOK [Concomitant]
     Dosage: 50 MG, EACH MORNING
     Dates: start: 20000101
  9. TARDYFERON [Concomitant]
     Dosage: 1 D/F, 2/D
     Dates: start: 20100531
  10. CETRIZINE [Concomitant]
     Dosage: 1 D/F, DAILY (1/D)
     Dates: start: 20100601

REACTIONS (5)
  - ANAEMIA [None]
  - ASTHENIA [None]
  - HYPERURICAEMIA [None]
  - LEUKOPENIA [None]
  - THROMBOCYTOPENIA [None]
